FAERS Safety Report 7802398-0 (Version None)
Quarter: 2011Q4

REPORT INFORMATION
  Report Type: 
  Country: None (occurrence: None)
  Receive Date: 20111007
  Receipt Date: 20110929
  Transmission Date: 20120403
  Serious: Yes (Hospitalization)
  Sender: FDA-Public Use
  Company Number: JP-B.I. PHARMACEUTICALS,INC./RIDGEFIELD-2011-BP-22970NB

PATIENT
  Age: 6 Decade
  Sex: Male

DRUGS (4)
  1. SODIUM CHLORIDE [Concomitant]
     Route: 065
  2. MEPTIN [Concomitant]
     Route: 065
  3. DEXAMETHASONE [Concomitant]
     Route: 065
  4. SPIRIVA [Suspect]
     Dosage: 8 PUF
     Route: 055

REACTIONS (2)
  - ASTHMA [None]
  - OVERDOSE [None]
